FAERS Safety Report 20621624 (Version 1)
Quarter: 2022Q1

REPORT INFORMATION
  Report Type: Spontaneous
  Country: US (occurrence: US)
  Receive Date: 20220322
  Receipt Date: 20220322
  Transmission Date: 20220424
  Serious: No
  Sender: FDA-Public Use
  Company Number: US-ALLERGAN-2120210US

PATIENT
  Age: 65 Year
  Sex: Female

DRUGS (4)
  1. LUMIGAN [Suspect]
     Active Substance: BIMATOPROST
     Indication: Glaucoma
     Dosage: 2 GTT, QHS
     Route: 047
     Dates: start: 202105
  2. LUMIGAN [Suspect]
     Active Substance: BIMATOPROST
     Indication: Intraocular pressure increased
  3. ESTRADIOL [Concomitant]
     Active Substance: ESTRADIOL
     Dosage: ONCE A WEEK OR ONCE EVERY 2 WEEKS(CREAM)
  4. LISINOPRIL [Concomitant]
     Active Substance: LISINOPRIL
     Indication: Hypertension
     Dosage: 2.5 MG, QAM

REACTIONS (3)
  - Condition aggravated [Not Recovered/Not Resolved]
  - Ocular hyperaemia [Not Recovered/Not Resolved]
  - Dry eye [Not Recovered/Not Resolved]

NARRATIVE: CASE EVENT DATE: 20210501
